FAERS Safety Report 7093654-5 (Version None)
Quarter: 2010Q4

REPORT INFORMATION
  Report Type: 
  Country: None (occurrence: None)
  Receive Date: 20101110
  Receipt Date: 20101103
  Transmission Date: 20110411
  Serious: Yes (Other)
  Sender: FDA-Public Use
  Company Number: US-JNJCH-2010025354

PATIENT
  Age: 1 Year
  Sex: Male
  Weight: 7.7 kg

DRUGS (1)
  1. DESITIN DIAPER RASH [Suspect]
     Indication: DERMATITIS DIAPER
     Dosage: TEXT:WHEN NECESSARY
     Route: 061

REACTIONS (1)
  - APPLICATION SITE VESICLES [None]
